FAERS Safety Report 5859165-7 (Version None)
Quarter: 2008Q3

REPORT INFORMATION
  Report Type: 
  Country: None (occurrence: None)
  Receive Date: 20080825
  Receipt Date: 20080812
  Transmission Date: 20090109
  Serious: Yes (Life-Threatening, Hospitalization)
  Sender: FDA-Public Use
  Company Number: 2008AL009660

PATIENT
  Age: 55 Year
  Sex: Male

DRUGS (6)
  1. DICLOFENAC SODIUM [Suspect]
     Indication: DRUG USE FOR UNKNOWN INDICATION
  2. DIAZEPAM [Suspect]
     Indication: DRUG USE FOR UNKNOWN INDICATION
  3. INSULIN HUMAN [Concomitant]
  4. LANSOPRAZOLE [Concomitant]
  5. ROSUVASTATIN CALCIUM [Concomitant]
  6. RAMIPRIL [Concomitant]

REACTIONS (9)
  - GENERAL PHYSICAL HEALTH DETERIORATION [None]
  - HAEMORRHAGE [None]
  - HERPES ZOSTER DISSEMINATED [None]
  - NEUROPATHIC ULCER [None]
  - RASH VESICULAR [None]
  - RENAL IMPAIRMENT [None]
  - SCAB [None]
  - SEPSIS [None]
  - TOXIC EPIDERMAL NECROLYSIS [None]
